FAERS Safety Report 4286493-1 (Version None)
Quarter: 2004Q1

REPORT INFORMATION
  Report Type: 
  Country: None (occurrence: None)
  Receive Date: 20040205
  Receipt Date: 20040205
  Transmission Date: 20041129
  Serious: Yes (Hospitalization)
  Sender: FDA-Public Use
  Company Number: None

PATIENT
  Age: 66 Year
  Sex: Female
  Weight: 117.9352 kg

DRUGS (4)
  1. AVELOX [Suspect]
     Indication: ENTEROBACTER INFECTION
     Dosage: 400 MG PO DAILY
     Route: 048
     Dates: start: 20031209, end: 20031215
  2. AVELOX [Suspect]
     Indication: OSTEOMYELITIS
     Dosage: 400 MG PO DAILY
     Route: 048
     Dates: start: 20031209, end: 20031215
  3. VANCOMYCIN [Suspect]
     Indication: OSTEOMYELITIS
     Dosage: 1 GM IV DAILY
     Route: 042
     Dates: start: 20031124, end: 20031215
  4. VANCOMYCIN [Suspect]
     Indication: STAPHYLOCOCCAL INFECTION
     Dosage: 1 GM IV DAILY
     Route: 042
     Dates: start: 20031124, end: 20031215

REACTIONS (5)
  - DIABETES MELLITUS INADEQUATE CONTROL [None]
  - ENTEROBACTER INFECTION [None]
  - LETHARGY [None]
  - STEVENS-JOHNSON SYNDROME [None]
  - TREMOR [None]
